FAERS Safety Report 8097929-2 (Version None)
Quarter: 2012Q1

REPORT INFORMATION
  Report Type: 
  Country: None (occurrence: None)
  Receive Date: 20120128
  Receipt Date: 20110721
  Transmission Date: 20120608
  Serious: No
  Sender: FDA-Public Use
  Company Number: US-ABBOTT-11P-163-0840885-00

PATIENT
  Age: 40 Year
  Sex: Female

DRUGS (5)
  1. EXALGO [Concomitant]
     Indication: MIGRAINE
  2. AMITRIPTYLINE HCL [Concomitant]
     Indication: MUSCLE SPASMS
     Dosage: AT BEDTIME
  3. VITAMIN D [Concomitant]
     Indication: VITAMIN D DEFICIENCY
  4. HUMIRA [Suspect]
     Indication: PSORIATIC ARTHROPATHY
     Dates: start: 20101101
  5. TOPAMAX [Concomitant]
     Indication: MIGRAINE PROPHYLAXIS

REACTIONS (3)
  - PRODUCTIVE COUGH [None]
  - SPUTUM PURULENT [None]
  - BRONCHITIS [None]
